FAERS Safety Report 14053706 (Version 1)
Quarter: 2017Q4

REPORT INFORMATION
  Report Type: Spontaneous
  Country: US (occurrence: US)
  Receive Date: 20171006
  Receipt Date: 20171006
  Transmission Date: 20180321
  Serious: No
  Sender: FDA-Public Use
  Company Number: US-VERTEX PHARMACEUTICALS-2017-005506

PATIENT
  Sex: Male

DRUGS (10)
  1. CREON [Concomitant]
     Active Substance: PANCRELIPASE AMYLASE\PANCRELIPASE LIPASE\PANCRELIPASE PROTEASE
  2. PRILOSEC [Concomitant]
     Active Substance: OMEPRAZOLE MAGNESIUM
  3. AQUADEKS                           /07679501/ [Concomitant]
     Active Substance: MINERALS\VITAMINS
  4. ZYRTEC [Concomitant]
     Active Substance: CETIRIZINE HYDROCHLORIDE
  5. PROAIR HFA [Concomitant]
     Active Substance: ALBUTEROL SULFATE
  6. ORKAMBI [Suspect]
     Active Substance: IVACAFTOR\LUMACAFTOR
     Indication: CYSTIC FIBROSIS
     Dosage: UNK, BID
     Route: 048
     Dates: start: 201704
  7. FLOVENT [Concomitant]
     Active Substance: FLUTICASONE PROPIONATE
  8. VITAMIN D3 [Concomitant]
     Active Substance: CHOLECALCIFEROL
  9. TOBI [Concomitant]
     Active Substance: TOBRAMYCIN
  10. PULMOZYME [Concomitant]
     Active Substance: DORNASE ALFA

REACTIONS (1)
  - Pulmonary function test decreased [Unknown]

NARRATIVE: CASE EVENT DATE: 2017
